FAERS Safety Report 6816307-4 (Version None)
Quarter: 2010Q3

REPORT INFORMATION
  Report Type: 
  Country: None (occurrence: None)
  Receive Date: 20100705
  Receipt Date: 20100621
  Transmission Date: 20110219
  Serious: Yes (Other)
  Sender: FDA-Public Use
  Company Number: PHHY2010AU40364

PATIENT
  Age: 42 Year
  Sex: Male

DRUGS (2)
  1. SANDOSTATIN LAR [Suspect]
     Indication: DIARRHOEA
     Dosage: 20 MG, QMO
  2. SANDOSTATIN LAR [Suspect]
     Dosage: 30 MG, QMO

REACTIONS (1)
  - DIARRHOEA [None]
